FAERS Safety Report 10061595 (Version 1)
Quarter: 2014Q2

REPORT INFORMATION
  Report Type: Spontaneous
  Country: FR (occurrence: None)
  Receive Date: 20140403
  Receipt Date: 20140403
  Transmission Date: 20141212
  Serious: Yes (Hospitalization)
  Sender: FDA-Public Use
  Company Number: SYM-2014-19017

PATIENT
  Age: 66 Year
  Sex: Female

DRUGS (3)
  1. MONO-TILDIEM [Suspect]
     Indication: TACHYCARDIA
     Route: 048
     Dates: start: 20140202, end: 20140217
  2. PARIET (RABEPRAZOLE SODIUM) (RABEPRAZOLE SODIUM) [Concomitant]
  3. GINKOR (GINKOR /00838501/) (TROXERUTIN, GINKGO BILOBA EXTRACT) [Concomitant]

REACTIONS (1)
  - Drug reaction with eosinophilia and systemic symptoms [None]
